FAERS Safety Report 9537906 (Version 1)
Quarter: 2013Q3

REPORT INFORMATION
  Report Type: Spontaneous
  Country: JP (occurrence: JP)
  Receive Date: 20130919
  Receipt Date: 20130919
  Transmission Date: 20140515
  Serious: Yes (Hospitalization, Other)
  Sender: FDA-Public Use
  Company Number: PHHY2013JP100844

PATIENT
  Sex: Male

DRUGS (6)
  1. QUETIAPINE [Suspect]
  2. PAROXETINE [Suspect]
     Indication: SOCIAL PHOBIA
     Dosage: 20 MG, DAILY
  3. PAROXETINE [Suspect]
     Indication: DEPRESSION
     Dosage: 30 MG, DAILY
  4. PAROXETINE [Suspect]
     Dosage: 20 MG, DAILY
  5. ETIZOLAM [Concomitant]
  6. TRAZODONE HYDROCHLORIDE [Concomitant]

REACTIONS (14)
  - Grand mal convulsion [Recovered/Resolved]
  - Malaise [Unknown]
  - Abulia [Unknown]
  - Rhabdomyolysis [Recovered/Resolved]
  - Myalgia [Recovered/Resolved]
  - Myoglobin blood increased [Recovered/Resolved]
  - Middle insomnia [Unknown]
  - Suicidal ideation [Unknown]
  - Syncope [Unknown]
  - Fall [Unknown]
  - Aspartate aminotransferase increased [Unknown]
  - Dizziness [Unknown]
  - Drug ineffective [Unknown]
  - Alanine aminotransferase increased [Unknown]
